FAERS Safety Report 4372809-4 (Version None)
Quarter: 2004Q2

REPORT INFORMATION
  Report Type: 
  Country: None (occurrence: None)
  Receive Date: 20040603
  Receipt Date: 20040528
  Transmission Date: 20050107
  Serious: Yes (Death)
  Sender: FDA-Public Use
  Company Number: 2004215963DE

PATIENT
  Age: 65 Year
  Sex: Female
  Weight: 67 kg

DRUGS (5)
  1. EPIRUBICIN [Suspect]
     Indication: BREAST CANCER
     Dosage: 170 MG, CYCLIC, IV
     Route: 042
     Dates: start: 20040428, end: 20040428
  2. FLUOROURACIL [Suspect]
     Indication: BREAST CANCER
     Dosage: 850 MG, CYCLIC, IV
     Route: 042
     Dates: start: 20040428, end: 20040428
  3. CYCLOPHOSPHAMIDE [Suspect]
     Indication: BREAST CANCER
     Dosage: 850 MG, CYCLIC, IV
     Route: 042
     Dates: start: 20040428, end: 20040428
  4. NEXIUM (OMEPRAZOLE MAGNESIUM) [Concomitant]
  5. AMITRIPTYLINE HCL [Concomitant]

REACTIONS (3)
  - DIARRHOEA [None]
  - FEELING ABNORMAL [None]
  - NAUSEA [None]
